FAERS Safety Report 5050978-0 (Version None)
Quarter: 2006Q3

REPORT INFORMATION
  Report Type: 
  Country: None (occurrence: None)
  Receive Date: 20060714
  Receipt Date: 20060704
  Transmission Date: 20061208
  Serious: Yes (Other)
  Sender: FDA-Public Use
  Company Number: PHHO2006AR10855

PATIENT
  Age: 74 Year
  Sex: Female

DRUGS (1)
  1. ZELMAC / HTF 919A [Suspect]
     Indication: IRRITABLE BOWEL SYNDROME
     Dosage: UNK, BID
     Dates: start: 20040101

REACTIONS (5)
  - ABNORMAL FAECES [None]
  - GASTROINTESTINAL DISORDER [None]
  - ORAL SURGERY [None]
  - OSTEOMYELITIS [None]
  - PAIN [None]
